FAERS Safety Report 10588489 (Version 3)
Quarter: 2015Q3

REPORT INFORMATION
  Report Type: Report from Study
  Country: DE (occurrence: DE)
  Receive Date: 20141117
  Receipt Date: 20150721
  Transmission Date: 20151125
  Serious: Yes (Life-Threatening, Hospitalization, Other)
  Sender: FDA-Public Use
  Company Number: DE-ROCHE-1477209

PATIENT
  Age: 46 Year
  Sex: Female
  Weight: 68 kg

DRUGS (50)
  1. NEULASTA [Concomitant]
     Active Substance: PEGFILGRASTIM
     Indication: NEUTROPENIA
     Route: 058
     Dates: start: 20140213, end: 20140213
  2. NEULASTA [Concomitant]
     Active Substance: PEGFILGRASTIM
     Route: 058
     Dates: start: 20140520, end: 20140520
  3. ALOXI [Concomitant]
     Active Substance: PALONOSETRON HYDROCHLORIDE
     Route: 042
     Dates: start: 20140326, end: 20140326
  4. ALOXI [Concomitant]
     Active Substance: PALONOSETRON HYDROCHLORIDE
     Route: 042
     Dates: start: 20140610, end: 20140610
  5. APREPITANT. [Concomitant]
     Active Substance: APREPITANT
     Indication: NAUSEA
     Route: 048
     Dates: start: 20140212, end: 20140212
  6. APREPITANT. [Concomitant]
     Active Substance: APREPITANT
     Route: 048
     Dates: start: 20140424, end: 20140425
  7. APREPITANT. [Concomitant]
     Active Substance: APREPITANT
     Route: 048
     Dates: start: 20140519, end: 20140519
  8. VERGENTAN [Concomitant]
     Route: 042
     Dates: start: 20140326, end: 20140326
  9. VERGENTAN [Concomitant]
     Route: 042
     Dates: start: 20140519, end: 20140519
  10. DOCETAXEL. [Concomitant]
     Active Substance: DOCETAXEL
     Indication: BREAST CANCER METASTATIC
     Route: 042
     Dates: start: 20140305, end: 201406
  11. NEULASTA [Concomitant]
     Active Substance: PEGFILGRASTIM
     Route: 058
     Dates: start: 20140424, end: 20140424
  12. ALOXI [Concomitant]
     Active Substance: PALONOSETRON HYDROCHLORIDE
     Route: 042
     Dates: start: 20140423, end: 20140423
  13. VERGENTAN [Concomitant]
     Route: 042
     Dates: start: 20140701, end: 20140701
  14. VERGENTAN [Concomitant]
     Route: 042
     Dates: start: 20140904, end: 20140904
  15. PERTUZUMAB [Suspect]
     Active Substance: PERTUZUMAB
     Indication: BREAST CANCER METASTATIC
     Dosage: MAINTENANCE DOSE, CYCLE AS PER PROTOCOL
     Route: 042
     Dates: start: 20140305
  16. HERCEPTIN [Concomitant]
     Active Substance: TRASTUZUMAB
     Indication: BREAST CANCER METASTATIC
     Route: 042
     Dates: start: 20140305
  17. NEULASTA [Concomitant]
     Active Substance: PEGFILGRASTIM
     Route: 058
     Dates: start: 20140306, end: 20140306
  18. ALOXI [Concomitant]
     Active Substance: PALONOSETRON HYDROCHLORIDE
     Route: 042
     Dates: start: 20140904, end: 20140904
  19. APREPITANT. [Concomitant]
     Active Substance: APREPITANT
     Route: 048
     Dates: start: 20140610, end: 20140610
  20. VERGENTAN [Concomitant]
     Route: 042
     Dates: start: 20140519, end: 20140519
  21. VERGENTAN [Concomitant]
     Route: 042
     Dates: start: 20140610, end: 20140610
  22. HERCEPTIN [Concomitant]
     Active Substance: TRASTUZUMAB
     Indication: HER-2 POSITIVE BREAST CANCER
     Dosage: LOADING DOSE ON DAY 1 OF CYCLE 1 AS PER PROTOCOL
     Route: 042
     Dates: start: 20140212, end: 20140212
  23. DOCETAXEL. [Concomitant]
     Active Substance: DOCETAXEL
     Indication: HER-2 POSITIVE BREAST CANCER
     Route: 042
     Dates: start: 20140212, end: 20140212
  24. ALOXI [Concomitant]
     Active Substance: PALONOSETRON HYDROCHLORIDE
     Route: 042
     Dates: start: 20140722, end: 20140722
  25. APREPITANT. [Concomitant]
     Active Substance: APREPITANT
     Route: 048
     Dates: start: 20140305, end: 20140305
  26. APREPITANT. [Concomitant]
     Active Substance: APREPITANT
     Route: 048
     Dates: start: 20140327, end: 20140328
  27. APREPITANT. [Concomitant]
     Active Substance: APREPITANT
     Route: 048
     Dates: start: 20140423, end: 20140423
  28. APREPITANT. [Concomitant]
     Active Substance: APREPITANT
     Route: 048
     Dates: start: 20140520, end: 20140521
  29. VERGENTAN [Concomitant]
     Route: 042
     Dates: start: 20140925, end: 20140925
  30. VERGENTAN [Concomitant]
     Route: 042
     Dates: start: 20141016, end: 20141016
  31. PERTUZUMAB [Suspect]
     Active Substance: PERTUZUMAB
     Indication: HER-2 POSITIVE BREAST CANCER
     Dosage: LOADING DOSE CYCLE 1, DAY 1 AS  PER PROTOCOL
     Route: 042
     Dates: start: 20140212, end: 20140212
  32. NEULASTA [Concomitant]
     Active Substance: PEGFILGRASTIM
     Route: 058
     Dates: start: 20140611, end: 20140611
  33. ALOXI [Concomitant]
     Active Substance: PALONOSETRON HYDROCHLORIDE
     Route: 042
     Dates: start: 20140305, end: 20140305
  34. ALOXI [Concomitant]
     Active Substance: PALONOSETRON HYDROCHLORIDE
     Route: 042
     Dates: start: 20140519, end: 20140519
  35. ALOXI [Concomitant]
     Active Substance: PALONOSETRON HYDROCHLORIDE
     Route: 042
     Dates: start: 20140701, end: 20140701
  36. VERGENTAN [Concomitant]
     Route: 042
     Dates: start: 20140423, end: 20140423
  37. ALOXI [Concomitant]
     Active Substance: PALONOSETRON HYDROCHLORIDE
     Indication: NAUSEA
     Route: 042
     Dates: start: 20140212, end: 20140212
  38. ALOXI [Concomitant]
     Active Substance: PALONOSETRON HYDROCHLORIDE
     Route: 042
     Dates: start: 20140812, end: 20140812
  39. ALOXI [Concomitant]
     Active Substance: PALONOSETRON HYDROCHLORIDE
     Route: 042
     Dates: start: 20140925, end: 20140925
  40. APREPITANT. [Concomitant]
     Active Substance: APREPITANT
     Route: 048
     Dates: start: 20140306, end: 20140307
  41. VERGENTAN [Concomitant]
     Indication: NAUSEA
     Route: 042
     Dates: start: 20140212, end: 20140212
  42. VERGENTAN [Concomitant]
     Route: 042
     Dates: start: 20140722, end: 20140722
  43. NEULASTA [Concomitant]
     Active Substance: PEGFILGRASTIM
     Route: 058
     Dates: start: 20140327, end: 20140327
  44. ALOXI [Concomitant]
     Active Substance: PALONOSETRON HYDROCHLORIDE
     Route: 042
     Dates: start: 20141016, end: 20141016
  45. APREPITANT. [Concomitant]
     Active Substance: APREPITANT
     Route: 048
     Dates: start: 20140213, end: 20140214
  46. APREPITANT. [Concomitant]
     Active Substance: APREPITANT
     Route: 048
     Dates: start: 20140326, end: 20140326
  47. APREPITANT. [Concomitant]
     Active Substance: APREPITANT
     Route: 048
     Dates: start: 20140611, end: 20140612
  48. ONDANSETRON [Concomitant]
     Active Substance: ONDANSETRON
     Indication: NAUSEA
     Dosage: AS REQUIRED
     Route: 048
     Dates: start: 20140515
  49. VERGENTAN [Concomitant]
     Route: 042
     Dates: start: 20140305, end: 20140305
  50. VERGENTAN [Concomitant]
     Route: 042
     Dates: start: 20140812, end: 20140812

REACTIONS (5)
  - Dizziness [Unknown]
  - Brain oedema [Recovered/Resolved]
  - Confusional state [Recovered/Resolved with Sequelae]
  - General physical health deterioration [Recovered/Resolved]
  - Metastases to central nervous system [Recovering/Resolving]

NARRATIVE: CASE EVENT DATE: 20141015
